FAERS Safety Report 18061114 (Version 2)
Quarter: 2020Q3

REPORT INFORMATION
  Report Type: Spontaneous
  Country: US (occurrence: US)
  Receive Date: 20200723
  Receipt Date: 20200814
  Transmission Date: 20201103
  Serious: No
  Sender: FDA-Public Use
  Company Number: US-009507513-2007USA008841

PATIENT
  Sex: Female

DRUGS (1)
  1. NEXPLANON [Suspect]
     Active Substance: ETONOGESTREL
     Dosage: 1 IMPLANT EVERY 3 YEARS
     Route: 059

REACTIONS (3)
  - Device difficult to use [Unknown]
  - Product quality issue [Unknown]
  - Device expulsion [Unknown]
